FAERS Safety Report 16913297 (Version 1)
Quarter: 2019Q4

REPORT INFORMATION
  Report Type: Spontaneous
  Country: US (occurrence: US)
  Receive Date: 20191011
  Receipt Date: 20191011
  Transmission Date: 20200122
  Serious: No
  Sender: FDA-Public Use
  Company Number: None

PATIENT
  Age: 29 Year
  Sex: Female

DRUGS (7)
  1. FOLIC ACID. [Concomitant]
     Active Substance: FOLIC ACID
  2. AZATHIOPRINE. [Concomitant]
     Active Substance: AZATHIOPRINE
  3. SPIRONOLACT [Concomitant]
     Active Substance: SPIRONOLACTONE
  4. VYVANSE [Concomitant]
     Active Substance: LISDEXAMFETAMINE DIMESYLATE
  5. HUMIRA [Suspect]
     Active Substance: ADALIMUMAB
     Indication: CROHN^S DISEASE
     Dosage: ?          OTHER FREQUENCY:EVERY OTHER WEEK;?
     Route: 058
     Dates: start: 20190917
  6. METHOTREXATE. [Concomitant]
     Active Substance: METHOTREXATE
  7. CLONAZEPAM. [Concomitant]
     Active Substance: CLONAZEPAM

REACTIONS (4)
  - Loss of consciousness [None]
  - Cough [None]
  - Weight decreased [None]
  - Malaise [None]

NARRATIVE: CASE EVENT DATE: 20190930
